FAERS Safety Report 8996715 (Version 2)
Quarter: 2013Q1

REPORT INFORMATION
  Report Type: Spontaneous
  Country: BR (occurrence: BR)
  Receive Date: 20130104
  Receipt Date: 20130206
  Transmission Date: 20140127
  Serious: Yes (Hospitalization, Other)
  Sender: FDA-Public Use
  Company Number: PHHY2011BR105793

PATIENT
  Sex: Male

DRUGS (7)
  1. DIOVAN AMLO FIX [Suspect]
     Indication: HYPERTENSION
     Dosage: 1 DF (160 MG VALS + 5 MG AMLO), QD (IN THE MORNING)
     Route: 048
     Dates: start: 2010, end: 201108
  2. DIOVAN AMLO FIX [Suspect]
     Dosage: 0.5 DF, QD
     Dates: end: 201108
  3. DIURETICS [Suspect]
     Dosage: UNK UKN, UNK
  4. LIPITOR [Concomitant]
     Indication: BLOOD CHOLESTEROL ABNORMAL
     Dosage: 1 DF, AT NIGHT (40 MG)
     Route: 048
  5. ASPIRINA PREVENT [Concomitant]
     Indication: ANTICOAGULANT THERAPY
     Dosage: 1 DF, AFTER LUNCH (100 MG)
     Route: 048
  6. ZYLORIC [Concomitant]
     Indication: BLOOD URIC ACID INCREASED
     Dosage: 1 DF, DAILY (100 MG)
     Route: 048
  7. SELOZOK [Concomitant]
     Indication: ARRHYTHMIA
     Dosage: 1 DF, (50 MG) QD
     Route: 048

REACTIONS (8)
  - Hypotension [Unknown]
  - Somnolence [Unknown]
  - Feeling abnormal [Unknown]
  - Ischaemia [Unknown]
  - Blood pressure increased [Unknown]
  - Labyrinthitis [Unknown]
  - Asthenia [Unknown]
  - Wrong technique in drug usage process [Unknown]
